FAERS Safety Report 5264385-9 (Version None)
Quarter: 2007Q1

REPORT INFORMATION
  Report Type: 
  Country: None (occurrence: None)
  Receive Date: 20070309
  Receipt Date: 20070227
  Transmission Date: 20070707
  Serious: Yes (Death)
  Sender: FDA-Public Use
  Company Number: 163-21880-07011089

PATIENT
  Age: 65 Year
  Sex: Male

DRUGS (11)
  1. REVLIMID [Suspect]
     Indication: MULTIPLE MYELOMA
     Dosage: 15 MG, 1 IN 1 D, ORAL
     Route: 048
     Dates: start: 20070105, end: 20070115
  2. AMBIEN [Concomitant]
  3. CALCIUM (CALCIUM) [Concomitant]
  4. COLACE (DOCUSATE SODIUM) [Concomitant]
  5. COMPAZINE [Concomitant]
  6. NEUPOGEN [Concomitant]
  7. NEURONTIN [Concomitant]
  8. PROTONIX [Concomitant]
  9. VICODIN [Concomitant]
  10. ZOFRAN [Concomitant]
  11. PROTRIN (BACTRIM) [Concomitant]

REACTIONS (12)
  - ANAEMIA [None]
  - ANOREXIA [None]
  - DRUG INTOLERANCE [None]
  - FEELING ABNORMAL [None]
  - INSOMNIA [None]
  - MULTIPLE MYELOMA [None]
  - NEOPLASM PROGRESSION [None]
  - PALLOR [None]
  - PLATELET COUNT DECREASED [None]
  - SEPSIS [None]
  - SKIN DISCOLOURATION [None]
  - WEIGHT DECREASED [None]
